FAERS Safety Report 5719100-9 (Version None)
Quarter: 2008Q2

REPORT INFORMATION
  Report Type: 
  Country: None (occurrence: None)
  Receive Date: 20080425
  Receipt Date: 20080402
  Transmission Date: 20081010
  Serious: Yes (Hospitalization, Other)
  Sender: FDA-Public Use
  Company Number: ES-BRISTOL-MYERS SQUIBB COMPANY-13345962

PATIENT
  Age: 68 Year
  Sex: Male

DRUGS (5)
  1. CETUXIMAB [Suspect]
     Indication: NEOPLASM MALIGNANT
     Route: 041
     Dates: start: 20050802, end: 20050829
  2. CISPLATIN [Suspect]
     Indication: NEOPLASM MALIGNANT
     Route: 042
     Dates: start: 20050802, end: 20050823
  3. FLUOROURACIL [Suspect]
     Indication: NEOPLASM MALIGNANT
     Route: 042
     Dates: start: 20050802, end: 20050823
  4. ENALAPRIL MALEATE [Concomitant]
  5. IBUPROFEN [Concomitant]

REACTIONS (18)
  - ANAEMIA [None]
  - ANOREXIA [None]
  - ASTHENIA [None]
  - CHILLS [None]
  - DIARRHOEA [None]
  - FEBRILE NEUTROPENIA [None]
  - HYPOTENSION [None]
  - METABOLIC ACIDOSIS [None]
  - NAUSEA [None]
  - NEUTROPENIA [None]
  - PYREXIA [None]
  - RENAL FAILURE [None]
  - SALMONELLA SEPSIS [None]
  - SKIN STRIAE [None]
  - SOMNOLENCE [None]
  - THERAPEUTIC AGENT TOXICITY [None]
  - THROMBOCYTOPENIA [None]
  - VOMITING [None]
